FAERS Safety Report 17838585 (Version 10)
Quarter: 2023Q1

REPORT INFORMATION
  Report Type: Report from Study
  Country: CA (occurrence: CA)
  Receive Date: 20200528
  Receipt Date: 20230127
  Transmission Date: 20230417
  Serious: Yes (Other)
  Sender: FDA-Public Use
  Company Number: NVSC2020CA142466

PATIENT
  Age: 47 Year
  Sex: Male

DRUGS (8)
  1. COSENTYX [Suspect]
     Active Substance: SECUKINUMAB
     Indication: Ankylosing spondylitis
     Dosage: 300 MG, QMO
     Route: 058
     Dates: start: 20200212, end: 20230115
  2. COSENTYX [Suspect]
     Active Substance: SECUKINUMAB
     Dosage: 300 MG, Q2W
     Route: 058
     Dates: end: 20230115
  3. REMICADE [Concomitant]
     Active Substance: INFLIXIMAB
     Indication: Product used for unknown indication
     Dosage: UNK, UNKNOWN
     Route: 065
     Dates: start: 2017, end: 2020
  4. NAPROXEN [Concomitant]
     Active Substance: NAPROXEN
     Indication: Product used for unknown indication
     Dosage: UNK, UNKNOWN
     Route: 065
  5. RABEPRAZOLE [Concomitant]
     Active Substance: RABEPRAZOLE
     Indication: Product used for unknown indication
     Dosage: 1 DOSAGE FORM, PRN
     Route: 048
     Dates: start: 202205
  6. FOLIC ACID [Concomitant]
     Active Substance: FOLIC ACID
     Indication: Product used for unknown indication
     Dosage: 1 DOSAGE FORM, QD (5 MG X 4 TABS)
     Route: 048
     Dates: start: 202205, end: 202205
  7. PREGABALIN [Concomitant]
     Active Substance: PREGABALIN
     Indication: Product used for unknown indication
     Dosage: 1 DOSAGE FORM, QD,  1 AT BEDTIME FOR 1 WEEK - WK 1 2 AT BEDTIME FOR 1 WEEK - WK2 3 AT BEDTIME FOR  1
     Route: 048
     Dates: start: 202205
  8. METHOTREXATE [Concomitant]
     Active Substance: METHOTREXATE
     Indication: Product used for unknown indication
     Dosage: UNK UNK, QW(4 TABS QW FOR 14 DAYS, 8 TABS QW)
     Route: 048
     Dates: start: 202205

REACTIONS (25)
  - Ankylosing spondylitis [Unknown]
  - Pain [Unknown]
  - Dysstasia [Unknown]
  - Musculoskeletal stiffness [Unknown]
  - Spinal pain [Unknown]
  - Fatigue [Unknown]
  - Discomfort [Unknown]
  - Back pain [Unknown]
  - Neck pain [Unknown]
  - Arthralgia [Unknown]
  - Movement disorder [Unknown]
  - Joint swelling [Unknown]
  - Joint noise [Unknown]
  - Gait disturbance [Unknown]
  - Rotator cuff syndrome [Unknown]
  - Decreased immune responsiveness [Unknown]
  - Illness [Unknown]
  - Lower respiratory tract infection [Unknown]
  - Sciatica [Unknown]
  - Mass [Unknown]
  - Depression [Unknown]
  - Synovial cyst [Unknown]
  - Gout [Unknown]
  - Off label use [Unknown]
  - Drug ineffective [Unknown]
